FAERS Safety Report 24203873 (Version 1)
Quarter: 2024Q3

REPORT INFORMATION
  Report Type: Spontaneous
  Country: CN (occurrence: CN)
  Receive Date: 20240813
  Receipt Date: 20240813
  Transmission Date: 20241016
  Serious: Yes (Hospitalization, Other)
  Sender: NOVAST
  Company Number: CN-NOVAST LABORATORIES INC.-2024NOV000289

PATIENT
  Age: 60 Year
  Sex: Male

DRUGS (8)
  1. OXALIPLATIN [Suspect]
     Active Substance: OXALIPLATIN
     Indication: Gastric cancer
     Dosage: 240 MILLIGRAM
     Dates: start: 20210312
  2. OXALIPLATIN [Suspect]
     Active Substance: OXALIPLATIN
     Dosage: 230 MILLIGRAM
     Route: 065
  3. OXALIPLATIN [Suspect]
     Active Substance: OXALIPLATIN
     Dosage: 200 MILLIGRAM, 4TH AND 5TH COURSE OF CHEMOTHERAPY
     Route: 065
  4. OXALIPLATIN [Suspect]
     Active Substance: OXALIPLATIN
     Dosage: 200 MILLIGRAM
     Dates: start: 20210726
  5. CAPECITABINE [Suspect]
     Active Substance: CAPECITABINE
     Indication: Gastric cancer
     Dosage: 2000 MILLIGRAM, Q.M, ON DAY 1-14
     Route: 048
     Dates: start: 20210312
  6. CAPECITABINE [Suspect]
     Active Substance: CAPECITABINE
     Dosage: 1500 MILLIGRAM, Q.N, ON DAY 1-14
     Route: 048
     Dates: start: 20210312
  7. CAPECITABINE [Suspect]
     Active Substance: CAPECITABINE
     Dosage: 1500 MILLIGRAM, TWICE-DAILY REGIMEN
     Route: 048
  8. CAPECITABINE [Suspect]
     Active Substance: CAPECITABINE
     Dosage: 1500 MILLIGRAM, TWICE-DAILY REGIMEN
     Route: 048
     Dates: start: 20210726

REACTIONS (1)
  - Myelodysplastic syndrome [Recovering/Resolving]
